FAERS Safety Report 8908647 (Version 2)
Quarter: 2013Q4

REPORT INFORMATION
  Report Type: Report from Study
  Country: JP (occurrence: JP)
  Receive Date: 20121114
  Receipt Date: 20131118
  Transmission Date: 20140711
  Serious: Yes (Hospitalization)
  Sender: FDA-Public Use
  Company Number: JP-VERTEX PHARMACEUTICAL INC.-AE-2012-009797

PATIENT
  Age: 55 Year
  Sex: Female

DRUGS (10)
  1. VX-950 (TELAPREVIR) [Suspect]
     Indication: CHRONIC HEPATITIS C
     Dosage: 2250 MG, QD
     Route: 048
     Dates: start: 20120611, end: 20120615
  2. VX-950 (TELAPREVIR) [Suspect]
     Dosage: 1500 MG, QD
     Route: 048
     Dates: start: 20120616, end: 20120624
  3. REBETOL [Suspect]
     Indication: CHRONIC HEPATITIS C
     Dosage: 400 MG, QD
     Route: 048
     Dates: start: 20120611, end: 20120624
  4. PEGINTRON [Suspect]
     Indication: CHRONIC HEPATITIS C
     Dosage: 1.5 ?G/KG, QW
     Route: 058
     Dates: start: 20120611, end: 20120624
  5. CELECOX [Concomitant]
     Dosage: 200 MG, QD
     Route: 048
     Dates: end: 20120615
  6. MUCOSTA [Concomitant]
     Dosage: 200 MG, QD
     Route: 048
  7. NEUMETHYCOLE [Concomitant]
     Dosage: 1500 ?G, QD
     Route: 048
  8. SELARA [Concomitant]
     Dosage: 50 MG, QD
     Route: 048
     Dates: start: 20120626
  9. BLOPRESS [Concomitant]
     Dosage: 8 MG, QD
     Route: 048
     Dates: start: 20120626
  10. NEXIUM [Concomitant]
     Dosage: 20 MG, QD
     Route: 048

REACTIONS (3)
  - Renal impairment [Recovered/Resolved]
  - Blood creatinine increased [Recovered/Resolved]
  - Vomiting [Recovered/Resolved]
